FAERS Safety Report 16573987 (Version 2)
Quarter: 2019Q3

REPORT INFORMATION
  Report Type: Report from Study
  Country: US (occurrence: US)
  Receive Date: 20190715
  Receipt Date: 20190819
  Transmission Date: 20191004
  Serious: Yes (Hospitalization, Other)
  Sender: FDA-Public Use
  Company Number: US-GILEAD-2019-0418190

PATIENT
  Age: 19 Year
  Sex: Female

DRUGS (30)
  1. ALBUTEROL SULFATE. [Concomitant]
     Active Substance: ALBUTEROL SULFATE
  2. VITAMINS NOS [Concomitant]
     Active Substance: VITAMINS
  3. NASONEX [Concomitant]
     Active Substance: MOMETASONE FUROATE
  4. CREON [Concomitant]
     Active Substance: PANCRELIPASE AMYLASE\PANCRELIPASE LIPASE\PANCRELIPASE PROTEASE
  5. ONDANSETRON HYDROCHLORIDE. [Concomitant]
     Active Substance: ONDANSETRON HYDROCHLORIDE
  6. AZTREONAM LYSINE [Suspect]
     Active Substance: AZTREONAM LYSINE
     Indication: CYSTIC FIBROSIS
     Dosage: 75 MG, TID FOR 28 DAYS ON AND 28 DAYS OFF
     Route: 055
  7. ALLERGY RELIEF [CETIRIZINE HYDROCHLORIDE] [Concomitant]
  8. TYLENOL [Concomitant]
     Active Substance: ACETAMINOPHEN
  9. SULFAMETHOXAZOLE AND TRIMETHOPRIM [Concomitant]
     Active Substance: SULFAMETHOXAZOLE\TRIMETHOPRIM
  10. LORATADINE. [Concomitant]
     Active Substance: LORATADINE
  11. SPIRONOLACTONE. [Concomitant]
     Active Substance: SPIRONOLACTONE
  12. SYMBICORT [Concomitant]
     Active Substance: BUDESONIDE\FORMOTEROL FUMARATE DIHYDRATE
  13. HYDROXYZINE HYDROCHLORIDE. [Concomitant]
     Active Substance: HYDROXYZINE HYDROCHLORIDE
  14. SODIUM CHLORIDE. [Concomitant]
     Active Substance: SODIUM CHLORIDE
  15. POTASSIUM CHLORIDE. [Concomitant]
     Active Substance: POTASSIUM CHLORIDE
  16. MIRALAX [Concomitant]
     Active Substance: POLYETHYLENE GLYCOL 3350
  17. PREVACID [Concomitant]
     Active Substance: LANSOPRAZOLE
  18. PULMOZYME [Concomitant]
     Active Substance: DORNASE ALFA
  19. FLUCONAZOLE. [Concomitant]
     Active Substance: FLUCONAZOLE
  20. ADVIL [IBUPROFEN] [Concomitant]
     Active Substance: IBUPROFEN
  21. PROAIR [FLUTICASONE PROPIONATE] [Concomitant]
     Active Substance: FLUTICASONE PROPIONATE
  22. ZOLOFT [Concomitant]
     Active Substance: SERTRALINE HYDROCHLORIDE
  23. CYPROHEPTADINE HYDROCHLORIDE. [Concomitant]
     Active Substance: CYPROHEPTADINE HYDROCHLORIDE
  24. LINEZOLID. [Concomitant]
     Active Substance: LINEZOLID
  25. PREDNISONE. [Concomitant]
     Active Substance: PREDNISONE
  26. CALCIUM CARBONATE. [Concomitant]
     Active Substance: CALCIUM CARBONATE
  27. GAS RELIEF [Concomitant]
     Active Substance: DIMETHICONE
  28. SINGULAIR [Concomitant]
     Active Substance: MONTELUKAST SODIUM
  29. VITAMIN D [COLECALCIFEROL] [Concomitant]
     Active Substance: CHOLECALCIFEROL
  30. DOXYCYCLINE HYCLATE. [Concomitant]
     Active Substance: DOXYCYCLINE HYCLATE

REACTIONS (2)
  - Cystic fibrosis [Unknown]
  - Infection [Not Recovered/Not Resolved]
